FAERS Safety Report 25275702 (Version 1)
Quarter: 2025Q2

REPORT INFORMATION
  Report Type: Spontaneous
  Country: GB (occurrence: GB)
  Receive Date: 20250507
  Receipt Date: 20250507
  Transmission Date: 20250716
  Serious: Yes (Other)
  Sender: ABBVIE
  Company Number: None

PATIENT
  Age: 75 Year
  Sex: Female
  Weight: 66 kg

DRUGS (1)
  1. CITALOPRAM [Suspect]
     Active Substance: CITALOPRAM
     Indication: Depression
     Dosage: 10MG ONCE A DAY
     Route: 065

REACTIONS (5)
  - Cardiomegaly [Unknown]
  - Medication error [Unknown]
  - Therapy cessation [Unknown]
  - Cardiac failure [Unknown]
  - Arrhythmia supraventricular [Recovered/Resolved]
